FAERS Safety Report 12965943 (Version 1)
Quarter: 2016Q4

REPORT INFORMATION
  Report Type: Report from Study
  Country: None (occurrence: US)
  Receive Date: 20161122
  Receipt Date: 20161122
  Transmission Date: 20170207
  Serious: Yes (Hospitalization)
  Sender: FDA-Public Use
  Company Number: US-ABBVIE-16K-163-1781101-00

PATIENT
  Age: 73 Year
  Sex: Female
  Weight: 70.37 kg

DRUGS (6)
  1. HUMIRA [Suspect]
     Active Substance: ADALIMUMAB
     Indication: RHEUMATOID ARTHRITIS
     Route: 058
  2. ASPIRIN. [Concomitant]
     Active Substance: ASPIRIN
     Indication: PRODUCT USED FOR UNKNOWN INDICATION
  3. VALSARTAN. [Concomitant]
     Active Substance: VALSARTAN
     Indication: HYPERTENSION
  4. SYNTHROID [Concomitant]
     Active Substance: LEVOTHYROXINE SODIUM
     Indication: HYPOTHYROIDISM
  5. AMLODIPINE [Concomitant]
     Active Substance: AMLODIPINE BESYLATE
     Indication: HYPERTENSION
  6. PROLIA [Concomitant]
     Active Substance: DENOSUMAB
     Indication: OSTEOPOROSIS

REACTIONS (7)
  - Rib fracture [Recovering/Resolving]
  - Contusion [Recovering/Resolving]
  - Sternal fracture [Recovering/Resolving]
  - Hyponatraemia [Recovered/Resolved]
  - Post-traumatic pain [Not Recovered/Not Resolved]
  - Road traffic accident [Recovering/Resolving]
  - Pneumothorax [Recovering/Resolving]

NARRATIVE: CASE EVENT DATE: 20161005
